FAERS Safety Report 9838793 (Version 1)
Quarter: 2014Q1

REPORT INFORMATION
  Report Type: Not Available
  Country: US (occurrence: US)
  Receive Date: 20140123
  Receipt Date: 20140123
  Transmission Date: 20141002
  Serious: Yes (Hospitalization)
  Sender: FDA-Public Use
  Company Number: US-VIROPHARMA INCORPORATED-20140110CINRY5628

PATIENT
  Age: 53 Year
  Sex: Female

DRUGS (4)
  1. CINRYZE (C1 ESTERASE INHIBITOR (HUMAN)) [Suspect]
     Indication: HEREDITARY ANGIOEDEMA
     Dosage: UNKNOWN
     Route: 042
     Dates: start: 201307
  2. CINRYZE (C1 ESTERASE INHIBITOR (HUMAN)) [Suspect]
     Indication: PROPHYLAXIS
  3. KALBITOR [Concomitant]
     Indication: HEREDITARY ANGIOEDEMA
  4. BERINERT [Concomitant]
     Indication: HEREDITARY ANGIOEDEMA

REACTIONS (10)
  - Road traffic accident [Unknown]
  - Gastrointestinal oedema [Unknown]
  - Spinal fracture [Unknown]
  - Pelvic fracture [Unknown]
  - Hereditary angioedema [Recovered/Resolved]
  - White blood cell count decreased [Recovered/Resolved]
  - Arthralgia [Unknown]
  - Fall [Unknown]
  - Gait disturbance [Not Recovered/Not Resolved]
  - Pain [Not Recovered/Not Resolved]
